FAERS Safety Report 6338698-3 (Version None)
Quarter: 2009Q3

REPORT INFORMATION
  Report Type: 
  Country: None (occurrence: None)
  Receive Date: 20090903
  Receipt Date: 20070604
  Transmission Date: 20100115
  Serious: Yes (Other)
  Sender: FDA-Public Use
  Company Number: US-ASTRAZENECA-2006UW12243

PATIENT
  Sex: Female
  Weight: 86.6 kg

DRUGS (22)
  1. SEROQUEL [Suspect]
     Indication: INSOMNIA
     Dosage: 100-200 MG
     Route: 048
     Dates: start: 20040129
  2. ZYPREXA [Suspect]
     Route: 048
     Dates: start: 19961216
  3. ABILIFY [Concomitant]
     Dosage: 15 MG DISPENSED
     Dates: start: 20040129
  4. HALDOL [Concomitant]
     Dosage: 5 MG IN THE MORNING AND 10 MG AT BEDTIME
     Dates: start: 20070101
  5. NAVANE [Concomitant]
  6. RISPERDAL [Concomitant]
  7. THORAZINE [Concomitant]
  8. METHADONE HCL [Concomitant]
  9. LORAZEPAM [Concomitant]
     Indication: ANXIETY
     Dosage: 1 MG, EVERY SIX HRS, PRN
     Dates: start: 19991029
  10. GABAPENTIN [Concomitant]
     Dates: start: 20070101
  11. ZELNORM [Concomitant]
     Indication: CONSTIPATION
     Dosage: 6 MG DAILY AS NEEDED
     Dates: start: 20060825
  12. TRICOR [Concomitant]
     Dates: start: 20060101
  13. LEVEMIR [Concomitant]
     Dosage: 70-90 UNITS
     Dates: start: 20060825
  14. INSULIN [Concomitant]
     Dosage: 15 UNITS
     Dates: start: 20000829
  15. ATENOLOL [Concomitant]
     Dates: start: 20020115
  16. FUROSEMIDE [Concomitant]
     Dosage: 20 MG ONE AND HALF TAB PER DAY
     Dates: start: 20070101
  17. LIPITOR [Concomitant]
     Indication: HYPERTRIGLYCERIDAEMIA
     Dates: start: 20070101
  18. LUNESTA [Concomitant]
     Indication: INSOMNIA
     Route: 048
     Dates: start: 20070101
  19. LUVOX [Concomitant]
     Indication: OBSESSIVE THOUGHTS
     Dates: start: 19961216
  20. LUVOX [Concomitant]
     Indication: ANXIETY
     Dates: start: 19961216
  21. LUVOX [Concomitant]
     Indication: DEPRESSION
     Dates: start: 19961216
  22. LANTUS [Concomitant]
     Dosage: 12 UNITS QAM AND AT BEDTIME
     Route: 058
     Dates: start: 20011015

REACTIONS (3)
  - DIABETES MELLITUS [None]
  - DIABETES MELLITUS INADEQUATE CONTROL [None]
  - DIABETIC NEUROPATHY [None]
